FAERS Safety Report 9386239 (Version 1)
Quarter: 2013Q3

REPORT INFORMATION
  Report Type: Report from Study
  Country: FR (occurrence: FR)
  Receive Date: 20130708
  Receipt Date: 20130708
  Transmission Date: 20140515
  Serious: Yes (Hospitalization)
  Sender: FDA-Public Use
  Company Number: FR-AMGEN-FRACT2013029268

PATIENT
  Age: 63 Year
  Sex: Female

DRUGS (7)
  1. ETANERCEPT [Suspect]
     Indication: RHEUMATOID ARTHRITIS
     Dosage: 25 MG, QWK
     Route: 065
     Dates: start: 200707, end: 200712
  2. ETANERCEPT [Suspect]
     Dosage: 25 MG, QWK
     Route: 065
     Dates: start: 200801, end: 200804
  3. ETANERCEPT [Suspect]
     Dosage: 50 MG, QWK
     Route: 065
     Dates: start: 200907, end: 201003
  4. ETANERCEPT [Suspect]
     Dosage: 25 MG, QWK
     Route: 065
     Dates: start: 201009, end: 201101
  5. METHOTREXATE [Concomitant]
     Dosage: 25 MG, WEEKLY
     Route: 065
     Dates: start: 1998, end: 200804
  6. METHOTREXATE [Concomitant]
     Dosage: 10 MG, WEEKLY
     Route: 065
     Dates: start: 200908, end: 201002
  7. METHOTREXATE [Concomitant]
     Dosage: 7.5 MG, WEEKLY
     Route: 065
     Dates: start: 201002, end: 201009

REACTIONS (3)
  - Procedural complication [Recovered/Resolved]
  - Staphylococcal sepsis [Recovered/Resolved]
  - Diarrhoea [Recovered/Resolved]
